FAERS Safety Report 4775432-2 (Version None)
Quarter: 2005Q3

REPORT INFORMATION
  Report Type: 
  Country: None (occurrence: None)
  Receive Date: 20050921
  Receipt Date: 20050921
  Transmission Date: 20060218
  Serious: Yes (Other)
  Sender: FDA-Public Use
  Company Number: None

PATIENT
  Age: 48 Year
  Sex: Female
  Weight: 58.0604 kg

DRUGS (5)
  1. LEVAQUIN [Suspect]
     Indication: SINUSITIS
     Dosage: 1 TABLET DAILY PO
     Route: 048
     Dates: start: 20050830, end: 20050912
  2. ADVAIR DISKUS 100/50 [Concomitant]
  3. RHINOCORT [Concomitant]
  4. DIFLUCAN [Concomitant]
  5. ZYRTEC [Concomitant]

REACTIONS (4)
  - BACK PAIN [None]
  - NECK PAIN [None]
  - PAIN IN EXTREMITY [None]
  - SHOULDER PAIN [None]
